FAERS Safety Report 5843497-2 (Version None)
Quarter: 2008Q3

REPORT INFORMATION
  Report Type: 
  Country: None (occurrence: None)
  Receive Date: 20080812
  Receipt Date: 20080804
  Transmission Date: 20090109
  Serious: No
  Sender: FDA-Public Use
  Company Number: APP200800714

PATIENT
  Age: 34 Year
  Sex: Female

DRUGS (2)
  1. HEPARIN SODIUM INJECTION [Suspect]
     Indication: DEEP VEIN THROMBOSIS
     Dosage: SUBCUTANEOUS
     Route: 058
     Dates: start: 19900101, end: 19900101
  2. HEPARIN SODIUM INJECTION [Suspect]
     Indication: DEEP VEIN THROMBOSIS
     Dosage: INTRAVENOUS
     Route: 042
     Dates: start: 19900101, end: 19900101

REACTIONS (2)
  - DRUG EXPOSURE DURING PREGNANCY [None]
  - WEIGHT DECREASED [None]
